FAERS Safety Report 7056573-6 (Version None)
Quarter: 2010Q4

REPORT INFORMATION
  Report Type: 
  Country: None (occurrence: None)
  Receive Date: 20101018
  Receipt Date: 20101004
  Transmission Date: 20110411
  Serious: Yes (Other)
  Sender: FDA-Public Use
  Company Number: 1000016804

PATIENT
  Sex: Male
  Weight: 43 kg

DRUGS (2)
  1. CITALOPRAM ORAL SOLUTION (CITALOPRAM HYDROBROMIDE) (DROPS) [Suspect]
     Dosage: 8 MG (8 MG, 1 IN 1 D), ORAL
     Route: 048
  2. SODIUM VALPROATE (VALPROATE SODIUM) (TABLETS) (VALPROATE SODIUM) [Concomitant]

REACTIONS (1)
  - CONVULSION [None]
